FAERS Safety Report 7668452-1 (Version None)
Quarter: 2011Q3

REPORT INFORMATION
  Report Type: 
  Country: None (occurrence: None)
  Receive Date: 20110808
  Receipt Date: 20110729
  Transmission Date: 20111222
  Serious: Yes (Death, Hospitalization, Other)
  Sender: FDA-Public Use
  Company Number: BR-BAYER-201016948LA

PATIENT
  Age: 26 Year
  Sex: Male
  Weight: 49 kg

DRUGS (16)
  1. PLACEBO (12917) [Suspect]
     Indication: HEPATIC NEOPLASM MALIGNANT
     Dosage: 150 MG, QD (CYCLE 1)
     Route: 048
     Dates: start: 20100317, end: 20100416
  2. PLACEBO (12917) [Suspect]
     Dosage: 50 MG, QD (CYCLE 2-3)
     Route: 048
     Dates: start: 20100507, end: 20100716
  3. SORAFENIB (RAF KINASE INHIBITOR) [Suspect]
     Dosage: 400 MG, QD (CYCLE 2-3)
     Route: 048
     Dates: start: 20100429, end: 20100716
  4. SERUM PHYSIOLOGICAL [Concomitant]
     Indication: FLUID REPLACEMENT
     Dosage: 1000 ML, UNK
     Dates: start: 20100716, end: 20100717
  5. SERUM GLUCOSAE [Concomitant]
     Indication: FLUID REPLACEMENT
     Dosage: 2000 ML, UNK
     Dates: start: 20100825, end: 20100827
  6. SORAFENIB (RAF KINASE INHIBITOR) [Suspect]
     Dosage: 400 MG, QOD (CYCLE 4)
     Route: 048
     Dates: start: 20100730, end: 20100818
  7. AMPLICTIL [Concomitant]
     Indication: PSYCHOTIC DISORDER
     Dosage: 100 MG, QD
     Route: 042
     Dates: start: 20100826, end: 20100826
  8. AMPLICTIL [Concomitant]
     Indication: SEDATION
     Dosage: 92 MG, UNK
     Dates: start: 20100826, end: 20100827
  9. SODIUM CHLORIDE [Concomitant]
     Indication: FLUID REPLACEMENT
     Dosage: 80 ML, UNK
     Dates: start: 20100825, end: 20100827
  10. PANTOPRAZOLE [Concomitant]
     Indication: PROPHYLAXIS
     Dosage: 40 MG, UNK
     Dates: start: 20100826, end: 20100826
  11. SORAFENIB (RAF KINASE INHIBITOR) [Suspect]
     Indication: HEPATIC NEOPLASM MALIGNANT
     Dosage: 400 MG, BID
     Route: 048
     Dates: start: 20100317, end: 20100428
  12. SORAFENIB (RAF KINASE INHIBITOR) [Suspect]
     Dosage: 400 MG, QD
     Dates: start: 20100819, end: 20100824
  13. PLACEBO (12917) [Suspect]
     Dosage: 50 MG, QD
     Route: 048
     Dates: start: 20100730, end: 20100824
  14. MORPHINE [Concomitant]
     Indication: PAIN
     Dosage: 100 MG, QD
     Route: 042
     Dates: start: 20100826, end: 20100826
  15. HENETIX [Concomitant]
     Indication: COMPUTERISED TOMOGRAM
     Dosage: 1.7 ML/KG, UNK
     Dates: start: 20100225, end: 20100722
  16. PLACEBO (12917) [Suspect]
     Dosage: 100 MG, QD (CYCLE 1-2)
     Route: 048
     Dates: start: 20100417, end: 20100506

REACTIONS (3)
  - HYPOTENSION [None]
  - CONVULSION [None]
  - DEEP VEIN THROMBOSIS [None]
